FAERS Safety Report 4340412-8 (Version None)
Quarter: 2004Q2

REPORT INFORMATION
  Report Type: 
  Country: None (occurrence: None)
  Receive Date: 20040414
  Receipt Date: 20040331
  Transmission Date: 20050107
  Serious: Yes (Hospitalization)
  Sender: FDA-Public Use
  Company Number: D01200400711

PATIENT
  Age: 60 Year
  Sex: Female

DRUGS (9)
  1. CISPLATIN [Suspect]
     Indication: CARCINOMA
     Dates: start: 20040105, end: 20040105
  2. FENTANYL [Concomitant]
  3. SENNA FRUIT [Concomitant]
  4. LORAZEPAM [Concomitant]
  5. DOMPERIDONE [Concomitant]
  6. DOCUSATE SODIUM [Concomitant]
  7. VENLAFAXINE HCL [Concomitant]
  8. CEPHALEXIN MONOHYDRATE [Concomitant]
  9. ATENOLOL [Concomitant]

REACTIONS (7)
  - CONTUSION [None]
  - FALL [None]
  - HEADACHE [None]
  - MUSCLE SPASMS [None]
  - MUSCULOSKELETAL DISCOMFORT [None]
  - MYALGIA [None]
  - SYNCOPE [None]
